FAERS Safety Report 6388571-X (Version None)
Quarter: 2009Q4

REPORT INFORMATION
  Report Type: 
  Country: None (occurrence: None)
  Receive Date: 20091005
  Receipt Date: 20090924
  Transmission Date: 20100525
  Serious: Yes (Death)
  Sender: FDA-Public Use
  Company Number: JP-ROCHE-659849

PATIENT
  Age: 60 Year
  Sex: Female

DRUGS (1)
  1. TAMIFLU [Suspect]
     Dosage: FORM: ORAL FORMULATION NOS
     Route: 048
     Dates: start: 20090917

REACTIONS (1)
  - ACUTE RESPIRATORY DISTRESS SYNDROME [None]
